FAERS Safety Report 11246558 (Version 1)
Quarter: 2015Q3

REPORT INFORMATION
  Report Type: Spontaneous
  Country: US (occurrence: None)
  Receive Date: 20150706
  Receipt Date: 20150706
  Transmission Date: 20151125
  Serious: Yes (Other)
  Sender: FDA-Public Use
  Company Number: None

PATIENT
  Age: 59 Year
  Sex: Female

DRUGS (11)
  1. PROZAC [Concomitant]
     Active Substance: FLUOXETINE HYDROCHLORIDE
  2. VISTARIL [Concomitant]
     Active Substance: HYDROXYZINE PAMOATE
  3. BENADRYL [Concomitant]
     Active Substance: DIPHENHYDRAMINE HYDROCHLORIDE
  4. TYLENOL [Concomitant]
     Active Substance: ACETAMINOPHEN
  5. PRILOSEC [Concomitant]
     Active Substance: OMEPRAZOLE MAGNESIUM
  6. ASA [Concomitant]
     Active Substance: ASPIRIN
  7. VICODIN [Concomitant]
     Active Substance: ACETAMINOPHEN\HYDROCODONE BITARTRATE
  8. LOSARTAN. [Concomitant]
     Active Substance: LOSARTAN
  9. PRAVASTATIN [Suspect]
     Active Substance: PRAVASTATIN\PRAVASTATIN SODIUM
     Indication: BLOOD CHOLESTEROL INCREASED
     Route: 048
     Dates: start: 20130301, end: 20150703
  10. COREG [Concomitant]
     Active Substance: CARVEDILOL
  11. XANAX [Concomitant]
     Active Substance: ALPRAZOLAM

REACTIONS (9)
  - Confusional state [None]
  - Fatigue [None]
  - Metabolic syndrome [None]
  - Vomiting [None]
  - Diarrhoea [None]
  - Abdominal distension [None]
  - Muscular weakness [None]
  - Abdominal pain upper [None]
  - Myalgia [None]

NARRATIVE: CASE EVENT DATE: 20150703
